FAERS Safety Report 10040660 (Version 2)
Quarter: 2014Q2

REPORT INFORMATION
  Report Type: Spontaneous
  Country: BR (occurrence: BR)
  Receive Date: 20140327
  Receipt Date: 20140407
  Transmission Date: 20141212
  Serious: Yes (Other)
  Sender: FDA-Public Use
  Company Number: BR-SA-2014SA033150

PATIENT
  Sex: Female

DRUGS (4)
  1. LANTUS [Suspect]
     Indication: DIABETES MELLITUS
     Route: 058
     Dates: end: 2006
  2. LANTUS [Suspect]
     Indication: DIABETES MELLITUS
     Route: 058
  3. CLONAZEPAM [Suspect]
     Indication: ANALGESIC THERAPY
     Route: 065
     Dates: start: 2011
  4. DEVICE NOS [Concomitant]
     Indication: DEVICE THERAPY

REACTIONS (8)
  - Intervertebral disc protrusion [Recovered/Resolved]
  - Pain [Recovered/Resolved]
  - Somnolence [Unknown]
  - Hypertension [Unknown]
  - Varicose vein [Unknown]
  - Pain [Unknown]
  - Blood glucose increased [Unknown]
  - Exposure during pregnancy [Unknown]
